FAERS Safety Report 18093782 (Version 2)
Quarter: 2020Q3

REPORT INFORMATION
  Report Type: Spontaneous
  Country: US (occurrence: US)
  Receive Date: 20200730
  Receipt Date: 20200903
  Transmission Date: 20201103
  Serious: Yes (Hospitalization, Other)
  Sender: FDA-Public Use
  Company Number: US-GLAXOSMITHKLINE-US2020AMR143018

PATIENT
  Age: 46 Year
  Sex: Male

DRUGS (2)
  1. ADVAIR DISKUS [Suspect]
     Active Substance: FLUTICASONE PROPIONATE\SALMETEROL XINAFOATE
     Indication: PRODUCT USED FOR UNKNOWN INDICATION
     Dosage: 1 PUFF(S) TWICE A DAY
     Dates: start: 1993
  2. VENTOLIN HFA [Suspect]
     Active Substance: ALBUTEROL SULFATE
     Indication: PRODUCT USED FOR UNKNOWN INDICATION
     Dosage: 1?2 PUFFS AS NEEDED
     Dates: start: 1993

REACTIONS (5)
  - Hospitalisation [Unknown]
  - Lung operation [Unknown]
  - Chronic obstructive pulmonary disease [Unknown]
  - Life support [Unknown]
  - Dyspnoea [Unknown]

NARRATIVE: CASE EVENT DATE: 2001
